FAERS Safety Report 24624376 (Version 1)
Quarter: 2024Q4

REPORT INFORMATION
  Report Type: Spontaneous
  Country: US (occurrence: None)
  Receive Date: 20241114
  Receipt Date: 20241114
  Transmission Date: 20250115
  Serious: Yes (Other)
  Sender: Public
  Company Number: None

PATIENT
  Age: 62 Year
  Sex: Female
  Weight: 48.6 kg

DRUGS (12)
  1. CHLORHEXIDINE GLUCONATE [Suspect]
     Active Substance: CHLORHEXIDINE GLUCONATE
     Indication: Antibiotic prophylaxis
     Route: 067
     Dates: start: 20241107, end: 20241107
  2. CHLORHEXIDINE GLUCONATE [Suspect]
     Active Substance: CHLORHEXIDINE GLUCONATE
  3. PROBIOTICS NOS [Concomitant]
     Active Substance: PROBIOTICS NOS
  4. 5-HTP [Concomitant]
  5. COLLAGEN [Concomitant]
     Active Substance: COLLAGEN
  6. ZINC [Concomitant]
     Active Substance: ZINC
  7. tuna oil [Concomitant]
  8. CALCIUM CITRATE [Concomitant]
     Active Substance: CALCIUM CITRATE
  9. Bio Inflamax [Concomitant]
  10. TYROSINE [Concomitant]
     Active Substance: TYROSINE
  11. D3-K2 [Concomitant]
  12. MAGNESIUM CITRATE [Concomitant]
     Active Substance: MAGNESIUM CITRATE

REACTIONS (3)
  - Vulvovaginal pruritus [None]
  - Vulvovaginal swelling [None]
  - Vulvovaginal burning sensation [None]

NARRATIVE: CASE EVENT DATE: 20241107
